FAERS Safety Report 9437202 (Version 2)
Quarter: 2013Q4

REPORT INFORMATION
  Report Type: Spontaneous
  Country: JP (occurrence: JP)
  Receive Date: 20130802
  Receipt Date: 20131101
  Transmission Date: 20140711
  Serious: Yes (Other)
  Sender: FDA-Public Use
  Company Number: PHHY2013JP082197

PATIENT
  Sex: 0

DRUGS (3)
  1. ZOMETA [Suspect]
     Dosage: UNK
     Route: 041
  2. HORMONES [Suspect]
     Dosage: UNK
  3. BONALON [Concomitant]
     Dosage: UNK

REACTIONS (1)
  - Bone density decreased [Recovered/Resolved]
